FAERS Safety Report 11836488 (Version 1)
Quarter: 2015Q4

REPORT INFORMATION
  Report Type: Spontaneous
  Country: FI (occurrence: FI)
  Receive Date: 20151215
  Receipt Date: 20151215
  Transmission Date: 20160305
  Serious: Yes (Hospitalization)
  Sender: FDA-Public Use
  Company Number: FI-SA-2015SA200254

PATIENT
  Sex: Female

DRUGS (3)
  1. MAREVAN [Suspect]
     Active Substance: WARFARIN SODIUM
     Indication: VENOUS THROMBOSIS
     Route: 065
  2. MAREVAN [Suspect]
     Active Substance: WARFARIN SODIUM
     Indication: VENOUS THROMBOSIS
     Route: 065
  3. KLEXANE [Suspect]
     Active Substance: ENOXAPARIN
     Indication: VENOUS THROMBOSIS
     Route: 051

REACTIONS (7)
  - Haematoma [Recovered/Resolved]
  - Oedema peripheral [Recovered/Resolved]
  - Mobility decreased [Recovered/Resolved]
  - Compartment syndrome [Recovered/Resolved]
  - Pain in extremity [Recovered/Resolved]
  - Muscle necrosis [Recovered/Resolved]
  - International normalised ratio increased [Recovered/Resolved]
